FAERS Safety Report 7518008-6 (Version None)
Quarter: 2011Q2

REPORT INFORMATION
  Report Type: 
  Country: None (occurrence: None)
  Receive Date: 20110602
  Receipt Date: 20110523
  Transmission Date: 20111010
  Serious: No
  Sender: FDA-Public Use
  Company Number: US-JNJFOC-20110510559

PATIENT
  Sex: Male
  Weight: 86.18 kg

DRUGS (4)
  1. MANY OTHER UNSPECIFIED MEDICATIONS [Concomitant]
     Indication: PAIN IN EXTREMITY
     Route: 065
  2. MANY OTHER UNSPECIFIED MEDICATIONS [Concomitant]
     Indication: NERVE INJURY
     Route: 065
  3. MANY OTHER UNSPECIFIED MEDICATIONS [Concomitant]
     Indication: ARTHRITIS
     Route: 065
  4. DURAGESIC-100 [Suspect]
     Indication: NEURALGIA
     Route: 062

REACTIONS (2)
  - WRONG TECHNIQUE IN DRUG USAGE PROCESS [None]
  - PRODUCT ADHESION ISSUE [None]
